FAERS Safety Report 7305249-6 (Version None)
Quarter: 2011Q1

REPORT INFORMATION
  Report Type: 
  Country: None (occurrence: None)
  Receive Date: 20110222
  Receipt Date: 20110216
  Transmission Date: 20110831
  Serious: Yes (Hospitalization, Other)
  Sender: FDA-Public Use
  Company Number: DE-PFIZER INC-2011020335

PATIENT
  Age: 40 Year
  Sex: Female
  Weight: 67 kg

DRUGS (3)
  1. LEVOTHYROXINE SODIUM [Concomitant]
     Indication: HYPOTHYROIDISM
     Dosage: UNK
  2. RAMIPRIL [Concomitant]
     Indication: HYPERTENSION
     Dosage: UNK
  3. CABASERIL [Suspect]
     Indication: PITUITARY TUMOUR BENIGN
     Dosage: 0.5 MG, WEEKLY
     Route: 048
     Dates: start: 20090101

REACTIONS (1)
  - ABSCESS [None]
